FAERS Safety Report 13319340 (Version 8)
Quarter: 2018Q2

REPORT INFORMATION
  Report Type: Report from Study
  Country: PL (occurrence: PL)
  Receive Date: 20170309
  Receipt Date: 20180420
  Transmission Date: 20180711
  Serious: Yes (Hospitalization)
  Sender: FDA-Public Use
  Company Number: PL-UCBSA-2017008393

PATIENT
  Age: 23 Year
  Sex: Male
  Weight: 74 kg

DRUGS (9)
  1. KETONAL [Concomitant]
     Active Substance: KETOPROFEN
     Indication: HEADACHE
  2. IBUPROM [Concomitant]
     Active Substance: IBUPROFEN
     Indication: PYREXIA
  3. CELECOXIB. [Concomitant]
     Active Substance: CELECOXIB
     Indication: ANKYLOSING SPONDYLITIS
     Dosage: 100 MG, 3X/DAY (TID)
     Route: 048
     Dates: start: 20161021
  4. PARACETAMOL [Concomitant]
     Active Substance: ACETAMINOPHEN
     Indication: VIRAL INFECTION
     Dosage: 500 MG, 3X/DAY (TID)
     Route: 048
     Dates: start: 20170103, end: 20170105
  5. CERTOLIZUMAB PEGOL [Suspect]
     Active Substance: CERTOLIZUMAB PEGOL
     Indication: AXIAL SPONDYLOARTHRITIS
     Dosage: 200 MG, EV 2 WEEKS(QOW)
     Route: 058
     Dates: start: 20161229, end: 20170223
  6. PARACETAMOL [Concomitant]
     Active Substance: ACETAMINOPHEN
     Indication: HEADACHE
     Dosage: 500 MG, ONCE DAILY (QD)
     Route: 048
     Dates: start: 20170227, end: 20170302
  7. PARACETAMOL [Concomitant]
     Active Substance: ACETAMINOPHEN
     Indication: PYREXIA
  8. IBUPROM [Concomitant]
     Active Substance: IBUPROFEN
     Indication: HEADACHE
  9. KETONAL [Concomitant]
     Active Substance: KETOPROFEN
     Indication: PYREXIA
     Dosage: ONCE
     Route: 030
     Dates: start: 20170227, end: 20170227

REACTIONS (1)
  - Meningitis aseptic [Recovered/Resolved]

NARRATIVE: CASE EVENT DATE: 20170301
